FAERS Safety Report 8018818-5 (Version None)
Quarter: 2012Q1

REPORT INFORMATION
  Report Type: 
  Country: None (occurrence: None)
  Receive Date: 20120103
  Receipt Date: 20111228
  Transmission Date: 20120608
  Serious: Yes (Other)
  Sender: FDA-Public Use
  Company Number: US-PFIZER INC-2011315739

PATIENT
  Sex: Male
  Weight: 70.295 kg

DRUGS (2)
  1. CHANTIX [Suspect]
     Indication: SMOKING CESSATION THERAPY
     Dosage: 0.5 MG, DAILY
     Dates: start: 20111220, end: 20111228
  2. PENTASA [Concomitant]
     Indication: CROHN'S DISEASE
     Dosage: 2000 MG, UNK

REACTIONS (5)
  - ANXIETY [None]
  - DEPRESSED MOOD [None]
  - RASH [None]
  - HAEMORRHAGE [None]
  - ANGER [None]
